FAERS Safety Report 8482977-0 (Version None)
Quarter: 2012Q3

REPORT INFORMATION
  Report Type: 
  Country: None (occurrence: None)
  Receive Date: 20120702
  Receipt Date: 20120620
  Transmission Date: 20120928
  Serious: Yes (Hospitalization)
  Sender: FDA-Public Use
  Company Number: US-BAXTER-2012BAX009355

PATIENT
  Age: 83 Year
  Sex: Female

DRUGS (3)
  1. DOBUTAMINE HYDROCHLORIDE IN DEXTROSE 5% [Suspect]
  2. DOBUTAMINE HYDROCHLORIDE IN DEXTROSE 5% [Suspect]
  3. ATROPINE [Concomitant]

REACTIONS (1)
  - STRESS CARDIOMYOPATHY [None]
